FAERS Safety Report 17721567 (Version 5)
Quarter: 2022Q2

REPORT INFORMATION
  Report Type: Spontaneous
  Country: US (occurrence: US)
  Receive Date: 20200429
  Receipt Date: 20220420
  Transmission Date: 20220721
  Serious: No
  Sender: FDA-Public Use
  Company Number: US-GSKCCFUS-CASE-00671368_AE-39426

PATIENT
  Age: 53 Year
  Sex: Female

DRUGS (2)
  1. BENLYSTA [Suspect]
     Active Substance: BELIMUMAB
     Indication: Product used for unknown indication
     Dosage: 200 MG , WE
     Route: 058
     Dates: start: 2018, end: 20200310
  2. BENLYSTA [Suspect]
     Active Substance: BELIMUMAB
     Indication: Product used for unknown indication
     Dosage: 200 MG/ML X4
     Route: 058
     Dates: start: 2020

REACTIONS (7)
  - Fatigue [Not Recovered/Not Resolved]
  - Asthenia [Not Recovered/Not Resolved]
  - Injection site haemorrhage [Unknown]
  - Device malfunction [Unknown]
  - Product dose omission issue [Unknown]
  - Extra dose administered [Unknown]
  - Product complaint [Unknown]

NARRATIVE: CASE EVENT DATE: 20200401
